FAERS Safety Report 20736270 (Version 1)
Quarter: 2022Q2

REPORT INFORMATION
  Report Type: Report from Study
  Country: IN (occurrence: IN)
  Receive Date: 20220421
  Receipt Date: 20220421
  Transmission Date: 20220721
  Serious: Yes (Hospitalization, Other)
  Sender: FDA-Public Use
  Company Number: IN-NOVARTISPH-NVSC2022IN001423

PATIENT
  Age: 23 Year
  Sex: Male

DRUGS (17)
  1. SIMULECT [Suspect]
     Active Substance: BASILIXIMAB
     Indication: Renal transplant
     Dosage: 20 MG
     Route: 041
     Dates: start: 20211201, end: 20211205
  2. METHYLPREDNISOLONE [Concomitant]
     Active Substance: METHYLPREDNISOLONE
     Indication: Product used for unknown indication
     Dosage: 250 MG, 4 DAYS
     Route: 041
  3. PANTOPRAZOLE [Concomitant]
     Active Substance: PANTOPRAZOLE
     Indication: Product used for unknown indication
     Dosage: 40 MG 1-0-0
     Route: 065
  4. ONDANSETRON [Concomitant]
     Active Substance: ONDANSETRON
     Indication: Product used for unknown indication
     Route: 065
  5. PREDNISOLONE [Concomitant]
     Active Substance: PREDNISOLONE
     Indication: Product used for unknown indication
     Dosage: 30MG 1-0-0 X 7DAYS THEN TO 20MG 1-0-0
     Route: 065
  6. PREDNISOLONE [Concomitant]
     Active Substance: PREDNISOLONE
     Dosage: 25MG 1-0-0
     Route: 065
  7. VALGANCICLOVIR [Concomitant]
     Active Substance: VALGANCICLOVIR
     Indication: Product used for unknown indication
     Dosage: 450MG 0-1-0 X8DAYS
     Route: 065
  8. AMLODIPINE BESYLATE [Concomitant]
     Active Substance: AMLODIPINE BESYLATE
     Indication: Product used for unknown indication
     Dosage: 10MG 1-0-1
     Route: 065
  9. CALCIUM CARBONATE\CHOLECALCIFEROL [Concomitant]
     Active Substance: CALCIUM CARBONATE\CHOLECALCIFEROL
     Indication: Product used for unknown indication
     Dosage: 500MG 1-1-0
     Route: 065
  10. DILTIAZEM [Concomitant]
     Active Substance: DILTIAZEM
     Indication: Product used for unknown indication
     Dosage: 90MG 1-0-1
     Route: 065
  11. TACROLIMUS [Concomitant]
     Active Substance: TACROLIMUS
     Indication: Product used for unknown indication
     Dosage: 2.75MG 1-0-1
     Route: 065
  12. TACROLIMUS [Concomitant]
     Active Substance: TACROLIMUS
     Dosage: 2.75MG 0-2.5MG
     Route: 065
  13. MYCOPHENOLATE MOFETIL [Concomitant]
     Active Substance: MYCOPHENOLATE MOFETIL
     Indication: Product used for unknown indication
     Dosage: 1GM 1-0-1X10 DAYS
     Route: 065
  14. T-BACT [Concomitant]
     Indication: Product used for unknown indication
     Route: 065
  15. AUGMENTIN [Concomitant]
     Active Substance: AMOXICILLIN\CLAVULANATE POTASSIUM
     Indication: Product used for unknown indication
     Dosage: 625MG 1-1-1 X 2DAYS
     Route: 065
  16. PHOSTAT [Concomitant]
     Indication: Product used for unknown indication
     Dosage: 667MG 1-1-1
     Route: 065
  17. LARITOL [Concomitant]
     Indication: Product used for unknown indication
     Dosage: 0.25MCG 1-0-1
     Route: 065

REACTIONS (4)
  - Kidney transplant rejection [Unknown]
  - Renal tubular necrosis [Unknown]
  - Tinea cruris [Unknown]
  - Furuncle [Unknown]

NARRATIVE: CASE EVENT DATE: 20211229
